FAERS Safety Report 4748226-1 (Version None)
Quarter: 2005Q3

REPORT INFORMATION
  Report Type: 
  Country: None (occurrence: None)
  Receive Date: 20050818
  Receipt Date: 20050817
  Transmission Date: 20060218
  Serious: Yes (Death)
  Sender: FDA-Public Use
  Company Number: US-BRISTOL-MYERS SQUIBB COMPANY-13080635

PATIENT
  Age: 68 Year
  Sex: Male
  Weight: 99 kg

DRUGS (2)
  1. CISPLATIN [Suspect]
     Indication: GASTRIC CANCER
     Route: 042
     Dates: start: 20041206, end: 20050207
  2. CAMPTOSAR [Suspect]
     Indication: GASTRIC CANCER
     Route: 042
     Dates: start: 20041206, end: 20050207

REACTIONS (2)
  - DEATH [None]
  - DYSPNOEA [None]
